FAERS Safety Report 5805731-4 (Version None)
Quarter: 2008Q3

REPORT INFORMATION
  Report Type: 
  Country: None (occurrence: None)
  Receive Date: 20080708
  Receipt Date: 20080708
  Transmission Date: 20090109
  Serious: Yes (Hospitalization)
  Sender: FDA-Public Use
  Company Number: None

PATIENT
  Age: 60 Year
  Sex: Male
  Weight: 79.8331 kg

DRUGS (16)
  1. GEMCITABINE [Suspect]
     Indication: HEAD AND NECK CANCER
     Dosage: 750 MG/M2 EVERY 14 DAYS IV
     Route: 042
     Dates: start: 20080129, end: 20080617
  2. PEMETREXED [Suspect]
     Indication: HEAD AND NECK CANCER
     Dosage: 250 MG/M2 EVERY 14 DAYS IV
     Route: 042
     Dates: start: 20080129, end: 20080617
  3. GABAPENTIN [Concomitant]
  4. LEXAPRO [Concomitant]
  5. SENNA [Concomitant]
  6. LIPITOR [Concomitant]
  7. NEXIUM [Concomitant]
  8. TOPROL-XL [Concomitant]
  9. HYDRALAZINE HCL [Concomitant]
  10. LASIX [Concomitant]
  11. MAGNESIUM OXIDE [Concomitant]
  12. IMDUR [Concomitant]
  13. PERCOCET [Concomitant]
  14. FOLIC ACID [Concomitant]
  15. DECADRON [Concomitant]
  16. VITAMIN B-12 [Concomitant]

REACTIONS (1)
  - HAEMOGLOBIN DECREASED [None]
